FAERS Safety Report 16740602 (Version 3)
Quarter: 2022Q2

REPORT INFORMATION
  Report Type: Spontaneous
  Country: US (occurrence: US)
  Receive Date: 20190826
  Receipt Date: 20220429
  Transmission Date: 20220721
  Serious: No
  Sender: FDA-Public Use
  Company Number: US-PFIZER INC-2019298343

PATIENT
  Age: 76 Year
  Sex: Female
  Weight: 72.562 kg

DRUGS (4)
  1. LYRICA [Suspect]
     Active Substance: PREGABALIN
     Indication: Fibromyalgia
     Dosage: 6 DF DAILY ( SIX CAPS OF 50MG CAPS A DAY)
  2. LYRICA [Suspect]
     Active Substance: PREGABALIN
     Indication: Osteoporosis
     Dosage: 150 MG, 2X/DAY(TWICE DAILY -AM+PM)
  3. LYRICA [Suspect]
     Active Substance: PREGABALIN
     Indication: Arthropathy
     Dosage: 300 MG, DAILY(SIX TIMES DAILY)
     Route: 048
  4. LYRICA [Suspect]
     Active Substance: PREGABALIN
     Indication: Back disorder

REACTIONS (3)
  - Hypersomnia [Unknown]
  - Increased appetite [Unknown]
  - Product administration error [Unknown]
